FAERS Safety Report 12947205 (Version 1)
Quarter: 2016Q4

REPORT INFORMATION
  Report Type: Spontaneous
  Country: US (occurrence: US)
  Receive Date: 20161116
  Receipt Date: 20161116
  Transmission Date: 20170207
  Serious: Yes (Other)
  Sender: FDA-Public Use
  Company Number: None

PATIENT
  Age: 63 Year
  Sex: Female
  Weight: 65.83 kg

DRUGS (1)
  1. CITRACAL + VITAMIN D SLOW RELEASE 1200 BAYER GLOBAL - CITRACAL PRODUCTS [Suspect]
     Active Substance: CALCIUM\CHOLECALCIFEROL
     Indication: SUPPLEMENTATION THERAPY
     Dosage: 1200 MG - CALCIUM 1,000 IU VITAMIN D 2 PILLS ONCE A DAY MORNING MOUTH
     Route: 048
     Dates: start: 20151108

REACTIONS (1)
  - Hypertension [None]

NARRATIVE: CASE EVENT DATE: 20151012
